FAERS Safety Report 7310362-3 (Version None)
Quarter: 2011Q1

REPORT INFORMATION
  Report Type: 
  Country: None (occurrence: None)
  Receive Date: 20110224
  Receipt Date: 20110217
  Transmission Date: 20110831
  Serious: Yes (Other)
  Sender: FDA-Public Use
  Company Number: US-BRISTOL-MYERS SQUIBB COMPANY-15557630

PATIENT
  Age: 47 Year
  Sex: Female

DRUGS (2)
  1. ORENCIA [Suspect]
  2. RECLAST [Suspect]
     Dates: start: 20101001

REACTIONS (2)
  - DIABETES MELLITUS [None]
  - CARDIAC FAILURE CONGESTIVE [None]
